FAERS Safety Report 8607125 (Version 2)
Quarter: 2013Q3

REPORT INFORMATION
  Report Type: Spontaneous
  Country: US (occurrence: US)
  Receive Date: 20120611
  Receipt Date: 20130722
  Transmission Date: 20140515
  Serious: Yes (Hospitalization, Disabling, Other)
  Sender: FDA-Public Use
  Company Number: US-ASTRAZENECA-2012SE34511

PATIENT
  Age: 35 Year
  Sex: Female
  Weight: 68 kg

DRUGS (11)
  1. NEXIUM [Suspect]
     Indication: GASTROOESOPHAGEAL REFLUX DISEASE
     Route: 048
     Dates: end: 2008
  2. OMEPRAZOLE [Suspect]
     Route: 048
  3. PRILOSEC OTC [Suspect]
     Route: 048
  4. CALCIUM [Concomitant]
  5. POTASSIUM [Concomitant]
  6. PROZAC [Concomitant]
  7. CARVEDILOL [Concomitant]
  8. HYDROXYZINE [Concomitant]
  9. AMLODIPINE BESYLATE [Concomitant]
  10. LIPITOR [Concomitant]
  11. CLONAZEPAM [Concomitant]
     Indication: NERVOUSNESS

REACTIONS (7)
  - Mental disorder [Unknown]
  - Wrist fracture [Unknown]
  - Arthropathy [Unknown]
  - Cerebrovascular accident [Unknown]
  - Osteoporosis [Unknown]
  - Bone pain [Unknown]
  - Multiple fractures [Unknown]
